FAERS Safety Report 16989188 (Version 1)
Quarter: 2019Q4

REPORT INFORMATION
  Report Type: Spontaneous
  Country: US (occurrence: US)
  Receive Date: 20191101
  Receipt Date: 20191101
  Transmission Date: 20200122
  Serious: Yes (Hospitalization)
  Sender: FDA-Public Use
  Company Number: None

PATIENT
  Age: 53 Year
  Sex: Female
  Weight: 81.8 kg

DRUGS (1)
  1. PROHANCE [Suspect]
     Active Substance: GADOTERIDOL
     Indication: CONTRAST MEDIA DEPOSITION
     Dosage: ?          OTHER FREQUENCY:1 TIME;?
     Route: 042

REACTIONS (6)
  - Ocular hyperaemia [None]
  - Throat irritation [None]
  - Swelling face [None]
  - Urticaria [None]
  - Pulmonary congestion [None]
  - Product quality issue [None]

NARRATIVE: CASE EVENT DATE: 20191030
